FAERS Safety Report 7092463-0 (Version None)
Quarter: 2010Q4

REPORT INFORMATION
  Report Type: 
  Country: None (occurrence: None)
  Receive Date: 20101108
  Receipt Date: 20101108
  Transmission Date: 20110411
  Serious: Yes (Other)
  Sender: FDA-Public Use
  Company Number: None

PATIENT
  Age: 76 Year
  Sex: Female
  Weight: 63.5036 kg

DRUGS (1)
  1. ACTONEL [Suspect]
     Dosage: 35 MG 1 X WEEK
     Dates: start: 20090901

REACTIONS (8)
  - ARTHRALGIA [None]
  - BLISTER [None]
  - DRY EYE [None]
  - ERYTHEMA [None]
  - OCULAR HYPERAEMIA [None]
  - PAIN IN JAW [None]
  - SKIN EXFOLIATION [None]
  - TOOTHACHE [None]
